FAERS Safety Report 7401762-1 (Version None)
Quarter: 2011Q2

REPORT INFORMATION
  Report Type: 
  Country: None (occurrence: None)
  Receive Date: 20110408
  Receipt Date: 20110406
  Transmission Date: 20111010
  Serious: No
  Sender: FDA-Public Use
  Company Number: US-PFIZER INC-2011076570

PATIENT
  Sex: Female
  Weight: 63.492 kg

DRUGS (11)
  1. NAPROXEN [Concomitant]
     Indication: INFLAMMATION
     Dosage: UNK
  2. SPIRIVA [Concomitant]
     Indication: CHRONIC OBSTRUCTIVE PULMONARY DISEASE
     Dosage: UNK
  3. ELMIRON [Concomitant]
     Indication: BLADDER DISORDER
     Dosage: UNK
  4. ALBUTEROL [Concomitant]
     Indication: CHRONIC OBSTRUCTIVE PULMONARY DISEASE
     Dosage: UNK
  5. METFORMIN [Concomitant]
     Indication: DIABETES MELLITUS
     Dosage: UNK
  6. CHANTIX [Suspect]
     Indication: SMOKING CESSATION THERAPY
     Dosage: 1 MG, 2X/DAY
     Route: 048
     Dates: start: 20110405
  7. LISINOPRIL AND HYDROCHLOROTHIAZIDE [Concomitant]
     Indication: HYPERTENSION
     Dosage: UNK
  8. SYMBICORT [Concomitant]
     Indication: CHRONIC OBSTRUCTIVE PULMONARY DISEASE
     Dosage: UNK
  9. METOPROLOL [Concomitant]
     Indication: HYPERTENSION
     Dosage: UNK
  10. CHANTIX [Suspect]
     Dosage: 0.5 MG, 1X/DAY
     Dates: start: 20110301
  11. ACETYLSALICYLIC ACID [Concomitant]
     Dosage: 81 MG, UNK

REACTIONS (1)
  - RASH [None]
